FAERS Safety Report 17225731 (Version 1)
Quarter: 2020Q1

REPORT INFORMATION
  Report Type: Spontaneous
  Country: FR (occurrence: FR)
  Receive Date: 20200102
  Receipt Date: 20200102
  Transmission Date: 20200409
  Serious: Yes (Hospitalization)
  Sender: FDA-Public Use
  Company Number: FR-PFIZER INC-2019563366

PATIENT
  Age: 31 Year
  Sex: Female

DRUGS (3)
  1. MORPHINE [Concomitant]
     Active Substance: MORPHINE
     Dosage: UNK
     Route: 042
     Dates: start: 20191008, end: 20191009
  2. PERFALGAN [Suspect]
     Active Substance: ACETAMINOPHEN
     Indication: PAIN
     Dosage: UNK
     Route: 042
     Dates: start: 20191008, end: 20191009
  3. EUPANTOL [Suspect]
     Active Substance: PANTOPRAZOLE SODIUM
     Indication: ULCER
     Dosage: 80 MILLIGRAM, QD
     Route: 042
     Dates: start: 20191008, end: 20191009

REACTIONS (1)
  - Hepatocellular injury [Not Recovered/Not Resolved]

NARRATIVE: CASE EVENT DATE: 20191009
